FAERS Safety Report 7743540-X (Version None)
Quarter: 2011Q3

REPORT INFORMATION
  Report Type: 
  Country: None (occurrence: None)
  Receive Date: 20110912
  Receipt Date: 20110831
  Transmission Date: 20111222
  Serious: Yes (Disabling)
  Sender: FDA-Public Use
  Company Number: JP-SANOFI-AVENTIS-2011SA051581

PATIENT
  Age: 64 Year
  Sex: Male
  Weight: 53 kg

DRUGS (10)
  1. JANUVIA [Concomitant]
     Indication: TYPE 2 DIABETES MELLITUS
     Route: 048
     Dates: end: 20110721
  2. NOVORAPID [Suspect]
     Indication: TYPE 2 DIABETES MELLITUS
     Dosage: 2-2-2
     Route: 058
     Dates: start: 20110722
  3. LANTUS [Suspect]
     Indication: TYPE 2 DIABETES MELLITUS
     Dosage: AT BEDTIME
     Route: 058
     Dates: start: 20110722
  4. AMLODIPINE [Suspect]
     Route: 065
     Dates: start: 20110715, end: 20110727
  5. AMARYL [Concomitant]
     Indication: TYPE 2 DIABETES MELLITUS
     Route: 048
     Dates: end: 20110721
  6. METFORMIN HCL [Concomitant]
     Route: 048
     Dates: end: 20110721
  7. LANTUS [Suspect]
     Dosage: DOSE INCREASED
     Route: 058
     Dates: start: 20110725, end: 20110727
  8. NOVORAPID [Suspect]
     Dosage: DOSE: 6 THEN 2 AND THEN 4
     Route: 058
     Dates: start: 20110725, end: 20110727
  9. VALSARTAN [Concomitant]
     Indication: HYPERTENSION
     Route: 048
  10. ASPIRIN [Concomitant]
     Route: 048

REACTIONS (5)
  - HEPATIC FUNCTION ABNORMAL [None]
  - ALANINE AMINOTRANSFERASE INCREASED [None]
  - ASPARTATE AMINOTRANSFERASE INCREASED [None]
  - GAMMA-GLUTAMYLTRANSFERASE INCREASED [None]
  - BLOOD ALKALINE PHOSPHATASE INCREASED [None]
